FAERS Safety Report 10454536 (Version 1)
Quarter: 2014Q3

REPORT INFORMATION
  Report Type: Spontaneous
  Country: US (occurrence: US)
  Receive Date: 20140915
  Receipt Date: 20140915
  Transmission Date: 20150326
  Serious: No
  Sender: FDA-Public Use
  Company Number: US-BRISTOL-MYERS SQUIBB COMPANY-20588406

PATIENT
  Age: 52 Year
  Sex: Female
  Weight: 89.79 kg

DRUGS (2)
  1. ONGLYZA [Suspect]
     Active Substance: SAXAGLIPTIN HYDROCHLORIDE
  2. CLARITIN [Concomitant]
     Active Substance: LORATADINE

REACTIONS (6)
  - Abdominal pain upper [Recovering/Resolving]
  - Weight increased [Recovering/Resolving]
  - Constipation [Recovering/Resolving]
  - Sinusitis [Recovering/Resolving]
  - Hunger [Recovering/Resolving]
  - Nausea [Recovering/Resolving]
